FAERS Safety Report 4368952-6 (Version None)
Quarter: 2004Q2

REPORT INFORMATION
  Report Type: 
  Country: None (occurrence: None)
  Receive Date: 20040525
  Receipt Date: 20040517
  Transmission Date: 20050107
  Serious: Yes (Other)
  Sender: FDA-Public Use
  Company Number: 2004032240

PATIENT
  Sex: Female

DRUGS (1)
  1. LIPITOR [Suspect]
     Indication: ILL-DEFINED DISORDER
     Dosage: 20 MG (20 MG, 1 IN 1 D), ORAL
     Route: 048

REACTIONS (10)
  - ACTIVITIES OF DAILY LIVING IMPAIRED [None]
  - BACK PAIN [None]
  - DIFFICULTY IN WALKING [None]
  - DYSSTASIA [None]
  - EYE OPERATION [None]
  - MOBILITY DECREASED [None]
  - MUSCLE DISORDER [None]
  - NERVOUSNESS [None]
  - PAIN [None]
  - PAIN IN EXTREMITY [None]
